FAERS Safety Report 7344411-3 (Version None)
Quarter: 2011Q1

REPORT INFORMATION
  Report Type: 
  Country: None (occurrence: None)
  Receive Date: 20110310
  Receipt Date: 20110303
  Transmission Date: 20110831
  Serious: Yes (Death)
  Sender: FDA-Public Use
  Company Number: US-NAPPMUNDI-USA-2011-0064876

PATIENT
  Sex: Male

DRUGS (2)
  1. PERCOCET [Suspect]
     Indication: PAIN
     Dosage: UNK, PRN
  2. BUTRANS [Suspect]
     Indication: PAIN
     Dosage: 5 MCG, UNK

REACTIONS (1)
  - DEATH [None]
